FAERS Safety Report 9740404 (Version 1)
Quarter: 2013Q4

REPORT INFORMATION
  Report Type: Spontaneous
  Country: US (occurrence: US)
  Receive Date: 20131209
  Receipt Date: 20131209
  Transmission Date: 20140711
  Serious: Yes (Hospitalization)
  Sender: FDA-Public Use
  Company Number: US-CUBIST PHARMACEUTICAL, INC.-2013CBST001257

PATIENT
  Sex: 0

DRUGS (2)
  1. CUBICIN [Suspect]
     Indication: SKIN INFECTION
     Dosage: 500 MG, QD (10 ML)
     Route: 042
     Dates: start: 20131126
  2. WARFARIN [Suspect]
     Indication: ANTICOAGULANT THERAPY
     Dosage: UNK UNK, UNK
     Route: 048
     Dates: end: 20131127

REACTIONS (2)
  - Contusion [Not Recovered/Not Resolved]
  - International normalised ratio increased [Recovered/Resolved]
